FAERS Safety Report 8599177-6 (Version None)
Quarter: 2012Q3

REPORT INFORMATION
  Report Type: 
  Country: None (occurrence: None)
  Receive Date: 20120816
  Receipt Date: 20120810
  Transmission Date: 20120928
  Serious: Yes (Other)
  Sender: FDA-Public Use
  Company Number: JP-EISAI INC-E2020-11192-SPO-JP

PATIENT
  Sex: Female

DRUGS (2)
  1. ARICEPT [Suspect]
     Route: 048
  2. ARICEPT [Suspect]
     Route: 048

REACTIONS (2)
  - DELIRIUM [None]
  - SOMNOLENCE [None]
